FAERS Safety Report 6020303-7 (Version None)
Quarter: 2008Q4

REPORT INFORMATION
  Report Type: 
  Country: None (occurrence: None)
  Receive Date: 20081223
  Receipt Date: 20081223
  Transmission Date: 20090506
  Serious: Yes (Life-Threatening, Hospitalization, Other)
  Sender: FDA-Public Use
  Company Number: None

PATIENT
  Sex: Female
  Weight: 49.8957 kg

DRUGS (1)
  1. SEROQUEL [Suspect]
     Indication: PANIC ATTACK
     Dosage: 400 MG TABLET 1 TABLET @ BEDTIME PO
     Route: 048
     Dates: start: 20080301, end: 20081125

REACTIONS (10)
  - DIABETIC KETOACIDOSIS [None]
  - EUTHYROID SICK SYNDROME [None]
  - HYPOCALCAEMIA [None]
  - HYPOMAGNESAEMIA [None]
  - IRON DEFICIENCY [None]
  - LOSS OF CONSCIOUSNESS [None]
  - LOSS OF EMPLOYMENT [None]
  - TYPE 1 DIABETES MELLITUS [None]
  - VITAMIN B12 DEFICIENCY [None]
  - WEIGHT DECREASED [None]
